FAERS Safety Report 18077211 (Version 1)
Quarter: 2020Q3

REPORT INFORMATION
  Report Type: Spontaneous
  Country: CA (occurrence: CA)
  Receive Date: 20200727
  Receipt Date: 20200727
  Transmission Date: 20201103
  Serious: Yes (Other)
  Sender: FDA-Public Use
  Company Number: CA-PFIZER INC-2020143312

PATIENT
  Age: 59 Year
  Sex: Female

DRUGS (3)
  1. IBRANCE [Suspect]
     Active Substance: PALBOCICLIB
     Dosage: 100 MG, CYCLIC(21 DAYS ON, 7 DAYS OFF/MBC)
     Dates: start: 20200411
  2. LETROZOLE. [Concomitant]
     Active Substance: LETROZOLE
     Dosage: UNK
  3. IBRANCE [Suspect]
     Active Substance: PALBOCICLIB
     Indication: BREAST CANCER METASTATIC
     Dosage: 100 MG, CYCLIC(21 DAYS ON, 7 DAYS OFF/MBC)
     Dates: start: 20190622

REACTIONS (2)
  - Neutropenia [Unknown]
  - Epilepsy [Unknown]

NARRATIVE: CASE EVENT DATE: 20200701
